FAERS Safety Report 20414778 (Version 1)
Quarter: 2022Q1

REPORT INFORMATION
  Report Type: Spontaneous
  Country: CA (occurrence: None)
  Receive Date: 20220202
  Receipt Date: 20220202
  Transmission Date: 20220423
  Serious: Yes (Death)
  Sender: FDA-Public Use
  Company Number: CA-ROCHE-3007537

PATIENT
  Age: 29 Year
  Sex: Male

DRUGS (1)
  1. BEVACIZUMAB [Suspect]
     Active Substance: BEVACIZUMAB
     Indication: Glioblastoma
     Route: 042

REACTIONS (18)
  - Alanine aminotransferase increased [Fatal]
  - Anger [Fatal]
  - Constipation [Fatal]
  - Decreased appetite [Fatal]
  - Depression [Fatal]
  - Diarrhoea [Fatal]
  - Disturbance in attention [Fatal]
  - Fatigue [Fatal]
  - Frustration tolerance decreased [Fatal]
  - Hypertension [Fatal]
  - Impaired healing [Fatal]
  - Malaise [Fatal]
  - Memory impairment [Fatal]
  - Muscle spasms [Fatal]
  - Pain [Fatal]
  - Skin lesion [Fatal]
  - Sleep disorder [Fatal]
  - Thrombosis [Fatal]
